FAERS Safety Report 7658899-1 (Version None)
Quarter: 2011Q3

REPORT INFORMATION
  Report Type: 
  Country: None (occurrence: None)
  Receive Date: 20110804
  Receipt Date: 20110804
  Transmission Date: 20111222
  Serious: Yes (Life-Threatening)
  Sender: FDA-Public Use
  Company Number: None

PATIENT
  Sex: Female
  Weight: 97.5234 kg

DRUGS (1)
  1. BUTORPHANOL TARATRATE [Suspect]
     Indication: PAIN
     Dosage: 10 MG  6 HRS NOSTRIL
     Dates: start: 20110608, end: 20110610

REACTIONS (5)
  - DYSPNOEA [None]
  - SKIN DISCOLOURATION [None]
  - LIP SWELLING [None]
  - LIP DRY [None]
  - THROAT TIGHTNESS [None]
